FAERS Safety Report 9598964 (Version 1)
Quarter: 2013Q4

REPORT INFORMATION
  Report Type: Spontaneous
  Country: US (occurrence: US)
  Receive Date: 20131004
  Receipt Date: 20131004
  Transmission Date: 20140711
  Serious: No
  Sender: FDA-Public Use
  Company Number: US-AMGEN-USASP2013027561

PATIENT
  Age: 49 Year
  Sex: Female
  Weight: 109.75 kg

DRUGS (21)
  1. ENBREL [Suspect]
     Indication: PRODUCT USED FOR UNKNOWN INDICATION
     Dosage: 50 MG, QWK
     Route: 058
  2. CYMBALTA [Concomitant]
     Dosage: 20 MG, UNK
  3. REQUIP [Concomitant]
     Dosage: 5 MG, UNK
  4. NEURONTIN [Concomitant]
     Dosage: 100 MG, UNK
  5. METOPROLOL TARTRATE [Concomitant]
     Dosage: 50 MG, UNK
  6. AMRIX [Concomitant]
     Dosage: 15 MG, UNK
  7. ALBUTEROL                          /00139501/ [Concomitant]
     Dosage: 90 MUG, UNK
  8. LEVOTHYROXIN [Concomitant]
     Dosage: 75 MUG, UNK
  9. FLOMAX                             /00889901/ [Concomitant]
     Dosage: 0.4 MG, UNK
  10. YEAST [Concomitant]
     Dosage: UNK
  11. PERCOCET                           /00446701/ [Concomitant]
     Dosage: 5-325 MG
  12. EXCEDRIN                           /00110301/ [Concomitant]
     Dosage: UNK
  13. PROAIR HFA [Concomitant]
     Dosage: UNK
  14. OMEGA 3                            /01334101/ [Concomitant]
     Dosage: UNK
  15. CALCIUM D                          /00944201/ [Concomitant]
     Dosage: UNK
  16. TYLENOL ARTHRITIS [Concomitant]
     Dosage: 650 MG, UNK
  17. VITAMIN B 12 [Concomitant]
     Dosage: 100 MUG, UNK
  18. DUEXIS [Concomitant]
     Dosage: 800-26.6
  19. PROBIOTIC                          /06395501/ [Concomitant]
  20. OXYCONTIN [Concomitant]
     Dosage: 10 MG, UNK
  21. MAGNESIUM [Concomitant]
     Dosage: 300 MG, UNK

REACTIONS (2)
  - Injection site pain [Unknown]
  - Influenza [Unknown]
